FAERS Safety Report 4412608-8 (Version None)
Quarter: 2004Q2

REPORT INFORMATION
  Report Type: 
  Country: None (occurrence: None)
  Receive Date: 20040630
  Receipt Date: 20040302
  Transmission Date: 20050107
  Serious: No
  Sender: FDA-Public Use
  Company Number: 04P-163-0252948-00

PATIENT
  Age: 79 Year
  Sex: Female
  Weight: 63.05 kg

DRUGS (10)
  1. HUMIRA [Suspect]
     Indication: RHEUMATOID ARTHRITIS
     Dosage: 40 MG, 1 IN 2 WK, SUBCUTANEOUS
     Route: 058
     Dates: start: 20040101, end: 20040130
  2. FOLIC ACID [Concomitant]
  3. AMLODIPINE BESYLATE [Concomitant]
  4. TOCOPHEROL CONCENTRATE CAP [Concomitant]
  5. CALCIUM CITRATE [Concomitant]
  6. POTASSIUM CHLORIDE [Concomitant]
  7. CELECOXIB [Concomitant]
  8. HYZAAR [Concomitant]
  9. TRAMADOL HYDROCHLORIDE [Concomitant]
  10. ESOMEPRAZOLE [Concomitant]

REACTIONS (2)
  - HEADACHE [None]
  - RASH [None]
